FAERS Safety Report 11244558 (Version 1)
Quarter: 2015Q3

REPORT INFORMATION
  Report Type: Spontaneous
  Country: US (occurrence: US)
  Receive Date: 20150707
  Receipt Date: 20150707
  Transmission Date: 20151125
  Serious: No
  Sender: FDA-Public Use
  Company Number: US-PFIZER INC-2015222039

PATIENT
  Age: 88 Year
  Sex: Female

DRUGS (1)
  1. TORISEL [Suspect]
     Active Substance: TEMSIROLIMUS
     Indication: RENAL CANCER
     Dosage: 25 MG, WEEKLY (X 16WKS)
     Route: 042
     Dates: start: 20110223, end: 20110707

REACTIONS (1)
  - Secondary hypertension [Unknown]
